FAERS Safety Report 10388812 (Version 1)
Quarter: 2014Q1

REPORT INFORMATION
  Report Type: Spontaneous
  Country: US (occurrence: None)
  Receive Date: 20140306
  Receipt Date: 20140306
  Transmission Date: 20141002
  Serious: Yes (Hospitalization)
  Sender: FDA-Public Use
  Company Number: 163-21880-13104273

PATIENT
  Age: 61 Year
  Sex: Male
  Weight: 97.52 kg

DRUGS (10)
  1. REVLIMID (LENALIDOMIDE) (15 MILLIGRAM, CAPSULES) [Suspect]
     Indication: PLASMA CELL MYELOMA
     Route: 048
     Dates: start: 201306
  2. TYLENOL/CODEINE (PANADEINE CO) [Concomitant]
  3. ZOLPIDEM TARTRATE [Concomitant]
  4. DEXAMETHASONE [Concomitant]
  5. GABAPENTIN [Concomitant]
  6. OMEPRAZOLE [Concomitant]
  7. LOVAZA (OMEGAPRAZOLE) [Concomitant]
  8. ALLOPURINOL [Concomitant]
  9. CYANOCOBALAMIN [Concomitant]
  10. ENOXAPARIN SODIUM (HEPARIN-FRACTION, SODIUM SALT) [Concomitant]

REACTIONS (1)
  - Pneumonia [None]
